FAERS Safety Report 9073872 (Version 1)
Quarter: 2013Q1

REPORT INFORMATION
  Report Type: Report from Study
  Country: US (occurrence: US)
  Receive Date: 20130129
  Receipt Date: 20130129
  Transmission Date: 20140127
  Serious: Yes (Other)
  Sender: FDA-Public Use
  Company Number: US-ABBOTT-12P-163-0927625-00

PATIENT
  Age: 55 Year
  Sex: Female

DRUGS (14)
  1. HUMIRA 40 MG/0.8 ML PEN [Suspect]
     Indication: RHEUMATOID ARTHRITIS
  2. HUMIRA 40 MG/0.8 ML PEN [Suspect]
     Dates: start: 20120419
  3. PLAQUENIL [Concomitant]
     Indication: RHEUMATOID ARTHRITIS
  4. FLEXERIL [Concomitant]
     Indication: MUSCLE SPASMS
     Dosage: ONCE DAILY AT BEDTIME
  5. PREDNISONE [Concomitant]
     Indication: RHEUMATOID ARTHRITIS
  6. VITAMIN D [Concomitant]
     Indication: PRODUCT USED FOR UNKNOWN INDICATION
     Dosage: WEEKLY
  7. CYMBALTA [Concomitant]
     Indication: DEPRESSION
     Dosage: 60 MG DAILY
  8. VITAMINS [Concomitant]
     Indication: PRODUCT USED FOR UNKNOWN INDICATION
     Dosage: DAILY
  9. FLUTICASONE [Concomitant]
     Indication: PRODUCT USED FOR UNKNOWN INDICATION
     Dosage: NASAL SPRAY, DAILY
     Route: 045
  10. TOPROL [Concomitant]
     Indication: CARDIAC DISORDER
     Dosage: 50 MG DAILY
  11. IMITREX [Concomitant]
     Indication: MIGRAINE
  12. FOSAMAX [Concomitant]
     Indication: BONE DISORDER
     Dosage: WEEKLY
  13. SYMBICORT [Concomitant]
     Indication: ASTHMA
     Dosage: 2 PUFFS DAILY
  14. VENTOLIN [Concomitant]
     Indication: ASTHMA

REACTIONS (1)
  - Aortic valve repair [Recovered/Resolved]
